FAERS Safety Report 8725756 (Version 2)
Quarter: 2013Q1

REPORT INFORMATION
  Report Type: Spontaneous
  Country: BR (occurrence: BR)
  Receive Date: 20120816
  Receipt Date: 20130313
  Transmission Date: 20140127
  Serious: Yes (Other)
  Sender: FDA-Public Use
  Company Number: BR-AMGEN-BRASP2012051179

PATIENT
  Age: 65 Year
  Sex: Female
  Weight: 58 kg

DRUGS (5)
  1. ENBREL [Suspect]
     Indication: RHEUMATOID ARTHRITIS
     Dosage: 50 MG, ONCE WEEKLY
     Route: 058
     Dates: start: 201203, end: 201210
  2. PREDNISONE [Concomitant]
     Dosage: UNK
  3. NIMESULIDE [Concomitant]
     Dosage: UNK
  4. FOLIC ACID [Concomitant]
     Indication: ANAEMIA
     Dosage: UNK
  5. BENEGRIP [Concomitant]
     Dosage: UNK

REACTIONS (3)
  - Appendicitis perforated [Unknown]
  - Umbilical hernia [Unknown]
  - Infection [Not Recovered/Not Resolved]
